FAERS Safety Report 4916288-4 (Version None)
Quarter: 2006Q1

REPORT INFORMATION
  Report Type: 
  Country: None (occurrence: None)
  Receive Date: 20060113
  Receipt Date: 20050922
  Transmission Date: 20060701
  Serious: No
  Sender: FDA-Public Use
  Company Number: 2005SP003177

PATIENT
  Age: 61 Year
  Sex: Female

DRUGS (4)
  1. LUNESTA [Suspect]
     Dosage: 2 MG;HS;ORAL
     Route: 048
     Dates: start: 20050920, end: 20050920
  2. AMITRIPTYLINE [Concomitant]
  3. PROVIGIL [Concomitant]
  4. ALPRAZOLAM [Concomitant]

REACTIONS (1)
  - HEADACHE [None]
